FAERS Safety Report 17590581 (Version 1)
Quarter: 2020Q1

REPORT INFORMATION
  Report Type: Spontaneous
  Country: US (occurrence: US)
  Receive Date: 20200327
  Receipt Date: 20200327
  Transmission Date: 20200409
  Serious: Yes (Other)
  Sender: FDA-Public Use
  Company Number: None

PATIENT
  Age: 67 Year
  Sex: Female
  Weight: 65 kg

DRUGS (2)
  1. VANCOYMCIN [Suspect]
     Active Substance: VANCOMYCIN
  2. VANCOMYCIN [Concomitant]
     Active Substance: VANCOMYCIN
     Dates: start: 20200318, end: 20200320

REACTIONS (1)
  - Red man syndrome [None]

NARRATIVE: CASE EVENT DATE: 20200319
